FAERS Safety Report 15857641 (Version 1)
Quarter: 2019Q1

REPORT INFORMATION
  Report Type: Spontaneous
  Country: IT (occurrence: IT)
  Receive Date: 20190123
  Receipt Date: 20190123
  Transmission Date: 20190417
  Serious: Yes (Other)
  Sender: FDA-Public Use
  Company Number: IT-MYLANLABS-2019M1003880

PATIENT
  Age: 67 Year
  Sex: Female

DRUGS (12)
  1. IRINOTECAN [Suspect]
     Active Substance: IRINOTECAN
     Indication: COLORECTAL CANCER METASTATIC
     Dosage: RECEIVED 13 CYCLES
     Route: 065
     Dates: start: 201702, end: 201708
  2. PANITUMUMAB [Suspect]
     Active Substance: PANITUMUMAB
     Dosage: RECEIVED 4 CYCLES
     Route: 065
     Dates: start: 201509, end: 201511
  3. PANITUMUMAB [Suspect]
     Active Substance: PANITUMUMAB
     Indication: COLORECTAL CANCER METASTATIC
     Dosage: RECEIVED 11 CYCLES
     Route: 065
     Dates: start: 201412, end: 201505
  4. OXALIPLATIN. [Suspect]
     Active Substance: OXALIPLATIN
     Dosage: RECEIVED 4 CYCLES
     Route: 065
     Dates: start: 201509, end: 201511
  5. FOLINIC ACID [Suspect]
     Active Substance: LEUCOVORIN
     Indication: COLORECTAL CANCER METASTATIC
     Dosage: RECEIVED 11 CYCLES
     Route: 065
     Dates: start: 201412, end: 201505
  6. FOLINIC ACID [Suspect]
     Active Substance: LEUCOVORIN
     Dosage: RECEIVED 4 CYCLES
     Route: 065
     Dates: start: 201509, end: 201511
  7. FLUOROURACIL. [Suspect]
     Active Substance: FLUOROURACIL
     Dosage: RECEIVED 4 CYCLES
     Route: 065
     Dates: start: 201509, end: 201511
  8. IRINOTECAN [Suspect]
     Active Substance: IRINOTECAN
     Dosage: RECEIVED 3 CYCLES
     Route: 065
     Dates: start: 201805, end: 201807
  9. FLUOROURACIL. [Suspect]
     Active Substance: FLUOROURACIL
     Indication: COLORECTAL CANCER METASTATIC
     Dosage: RECEIVED 11 CYCLES
     Route: 065
     Dates: start: 201412, end: 201505
  10. OXALIPLATIN. [Suspect]
     Active Substance: OXALIPLATIN
     Indication: COLORECTAL CANCER METASTATIC
     Dosage: RECEIVED 11 CYCLES
     Route: 065
     Dates: start: 201412, end: 201505
  11. AFLIBERCEPT [Suspect]
     Active Substance: AFLIBERCEPT
     Indication: COLORECTAL CANCER METASTATIC
     Route: 065
     Dates: start: 201702, end: 201807
  12. DOXYCYCLINE. [Concomitant]
     Active Substance: DOXYCYCLINE
     Indication: PROPHYLAXIS
     Route: 065

REACTIONS (5)
  - Rash [Unknown]
  - Neutropenia [Unknown]
  - Hypertension [Unknown]
  - Diarrhoea [Unknown]
  - Asthenia [Unknown]
